FAERS Safety Report 4648771-3 (Version None)
Quarter: 2005Q2

REPORT INFORMATION
  Report Type: 
  Country: None (occurrence: None)
  Receive Date: 20050427
  Receipt Date: 20050414
  Transmission Date: 20051028
  Serious: Yes (Life-Threatening, Hospitalization, Disabling)
  Sender: FDA-Public Use
  Company Number: 2005059749

PATIENT
  Age: 45 Year
  Sex: Male

DRUGS (3)
  1. CAMPTOSAR [Suspect]
     Indication: COLORECTAL CANCER
     Dosage: 40 MG, INTRAVENOUS
     Route: 042
     Dates: start: 20050321, end: 20050325
  2. TEGAFUR [Concomitant]
  3. OXYCODONE HCL [Concomitant]

REACTIONS (8)
  - ALOPECIA [None]
  - DIARRHOEA [None]
  - GASTROINTESTINAL HAEMORRHAGE [None]
  - GASTROINTESTINAL MUCOSAL NECROSIS [None]
  - LEUKOPENIA [None]
  - PYREXIA [None]
  - VOMITING [None]
  - WHITE BLOOD CELL COUNT DECREASED [None]
